FAERS Safety Report 13903276 (Version 2)
Quarter: 2017Q3

REPORT INFORMATION
  Report Type: Spontaneous
  Country: US (occurrence: US)
  Receive Date: 20170824
  Receipt Date: 20170907
  Transmission Date: 20171127
  Serious: No
  Sender: FDA-Public Use
  Company Number: US-PFIZER INC-2017360522

PATIENT
  Sex: Female

DRUGS (1)
  1. EPIPEN JR [Suspect]
     Active Substance: EPINEPHRINE
     Dosage: UNK

REACTIONS (3)
  - Expired product administered [Recovered/Resolved]
  - Accidental exposure to product [Unknown]
  - Vasodilatation [Unknown]

NARRATIVE: CASE EVENT DATE: 20170804
